FAERS Safety Report 6907866-1 (Version None)
Quarter: 2010Q3

REPORT INFORMATION
  Report Type: 
  Country: None (occurrence: None)
  Receive Date: 20100805
  Receipt Date: 20100614
  Transmission Date: 20110219
  Serious: No
  Sender: FDA-Public Use
  Company Number: US-MYLANLABS-2010S1010546

PATIENT
  Age: 65 Year
  Sex: Female

DRUGS (4)
  1. LAMOTRIGINE [Suspect]
     Indication: CONVULSION
     Route: 048
     Dates: start: 20100401
  2. LAMOTRIGINE [Suspect]
     Route: 048
     Dates: start: 20100401
  3. PHENOBARBITAL [Suspect]
     Indication: CONVULSION
     Route: 048
  4. TOPAMAX [Suspect]
     Indication: CONVULSION
     Route: 048

REACTIONS (2)
  - ANTICONVULSANT DRUG LEVEL ABNORMAL [None]
  - DRUG INEFFECTIVE [None]
